FAERS Safety Report 9034892 (Version 1)
Quarter: 2013Q1

REPORT INFORMATION
  Report Type: Spontaneous
  Country: SZ (occurrence: None)
  Receive Date: 20130116
  Receipt Date: 20130116
  Transmission Date: 20140127
  Serious: Yes (Death, Hospitalization)
  Sender: FDA-Public Use
  Company Number: DSM-2013-00014

PATIENT
  Age: 87 Year
  Sex: Female

DRUGS (4)
  1. OLMETEC PLUS [Suspect]
     Indication: HYPERTENSION
     Route: 048
     Dates: end: 20121119
  2. ZYLORIC [Suspect]
     Indication: PRODUCT USED FOR UNKNOWN INDICATION
     Route: 048
     Dates: end: 20121119
  3. LASIX [Suspect]
     Indication: PRODUCT USED FOR UNKNOWN INDICATION
     Route: 048
     Dates: start: 20121115, end: 20121119
  4. LERCADIP (LERCANIDIPINE) (LERCANIDIPINE) [Concomitant]

REACTIONS (13)
  - Respiratory failure [None]
  - Renal failure acute [None]
  - Nephrotic syndrome [None]
  - Hyperparathyroidism secondary [None]
  - Hyperphosphataemia [None]
  - Dialysis [None]
  - Tachycardia [None]
  - Atrial fibrillation [None]
  - Dialysis related complication [None]
  - Pulmonary hypertension [None]
  - Drug ineffective [None]
  - Anti-neutrophil cytoplasmic antibody positive vasculitis [None]
  - Condition aggravated [None]
